FAERS Safety Report 20151600 (Version 1)
Quarter: 2021Q4

REPORT INFORMATION
  Report Type: Spontaneous
  Country: FR (occurrence: FR)
  Receive Date: 20211206
  Receipt Date: 20211206
  Transmission Date: 20220304
  Serious: Yes (Hospitalization)
  Sender: FDA-Public Use
  Company Number: None

PATIENT
  Age: 56 Year
  Sex: Male

DRUGS (4)
  1. LEVOFLOXACIN [Suspect]
     Active Substance: LEVOFLOXACIN
     Indication: Legionella infection
     Dosage: 500 MILLIGRAM, BID
     Route: 048
     Dates: start: 20210819, end: 20210902
  2. AZITHROMYCIN [Suspect]
     Active Substance: AZITHROMYCIN
     Indication: Legionella infection
     Dosage: 500 MILLIGRAM
     Route: 048
     Dates: start: 20210819, end: 20210825
  3. PIPERACILLIN [Suspect]
     Active Substance: PIPERACILLIN
     Indication: Superinfection bacterial
     Dosage: 4 GRAM, Q8H
     Route: 042
     Dates: start: 20210823, end: 20210830
  4. TAZOBACTAM [Suspect]
     Active Substance: TAZOBACTAM
     Indication: Superinfection bacterial
     Dosage: 500 MILLIGRAM, Q8H
     Route: 042
     Dates: start: 20210823, end: 20210830

REACTIONS (2)
  - Rash [Recovered/Resolved]
  - Eosinophilia [Recovered/Resolved]

NARRATIVE: CASE EVENT DATE: 20210907
